FAERS Safety Report 5194988-1 (Version None)
Quarter: 2006Q4

REPORT INFORMATION
  Report Type: 
  Country: None (occurrence: None)
  Receive Date: 20061227
  Receipt Date: 20061201
  Transmission Date: 20070319
  Serious: Yes (Death)
  Sender: FDA-Public Use
  Company Number: 20063347

PATIENT
  Sex: Female

DRUGS (2)
  1. LIORESAL [Suspect]
     Indication: HEAD INJURY
     Dosage: 570 MCG DAILY, INTRATHECAL
     Route: 037
  2. LIORESAL [Suspect]
     Indication: MUSCLE SPASTICITY
     Dosage: 570 MCG DAILY, INTRATHECAL
     Route: 037

REACTIONS (1)
  - DEATH [None]
